FAERS Safety Report 9249961 (Version 1)
Quarter: 2013Q2

REPORT INFORMATION
  Report Type: Spontaneous
  Country: US (occurrence: US)
  Receive Date: 20130424
  Receipt Date: 20130424
  Transmission Date: 20140414
  Serious: No
  Sender: FDA-Public Use
  Company Number: US-009507513-1304USA012148

PATIENT
  Age: 67 Year
  Sex: Female

DRUGS (1)
  1. JANUMET [Suspect]
     Indication: DIABETES MELLITUS
     Dosage: 50/1000, BID
     Route: 048
     Dates: start: 2009, end: 201304

REACTIONS (2)
  - Blood creatinine increased [Not Recovered/Not Resolved]
  - Medication error [Unknown]
